FAERS Safety Report 16378179 (Version 1)
Quarter: 2019Q2

REPORT INFORMATION
  Report Type: Spontaneous
  Country: ES (occurrence: ES)
  Receive Date: 20190531
  Receipt Date: 20190531
  Transmission Date: 20190711
  Serious: Yes (Other)
  Sender: FDA-Public Use
  Company Number: ES-PFIZER INC-2019224513

PATIENT
  Age: 75 Year
  Sex: Female

DRUGS (2)
  1. TRANKIMAZIN [Suspect]
     Active Substance: ALPRAZOLAM
     Dosage: 0.5 MG, UNK
  2. SEROXAT [Concomitant]
     Active Substance: PAROXETINE HYDROCHLORIDE
     Dosage: UNK

REACTIONS (2)
  - Blindness [Unknown]
  - Uveitis [Unknown]
